FAERS Safety Report 14612707 (Version 2)
Quarter: 2018Q2

REPORT INFORMATION
  Report Type: Report from Study
  Country: DE (occurrence: DE)
  Receive Date: 20180308
  Receipt Date: 20180414
  Transmission Date: 20180711
  Serious: No
  Sender: FDA-Public Use
  Company Number: DE-ROCHE-2077243

PATIENT
  Age: 51 Year
  Sex: Female

DRUGS (3)
  1. SPASMEX (TROSPIUM CHLORIDE) [Concomitant]
     Active Substance: TROSPIUM CHLORIDE
  2. ORTOTON [Concomitant]
  3. OCREVUS [Suspect]
     Active Substance: OCRELIZUMAB
     Indication: MULTIPLE SCLEROSIS
     Dosage: 27/FEB/2018
     Route: 042
     Dates: start: 20180213

REACTIONS (5)
  - Nausea [Recovered/Resolved]
  - Swelling face [Recovered/Resolved]
  - Vomiting [Unknown]
  - Nasopharyngitis [Recovered/Resolved]
  - Fatigue [Recovered/Resolved]

NARRATIVE: CASE EVENT DATE: 20180214
